FAERS Safety Report 10213945 (Version 1)
Quarter: 2014Q2

REPORT INFORMATION
  Report Type: Spontaneous
  Country: HR (occurrence: None)
  Receive Date: 20140530
  Receipt Date: 20140530
  Transmission Date: 20141212
  Serious: Yes (Hospitalization, Other)
  Sender: FDA-Public Use
  Company Number: SYM-2014-21252

PATIENT
  Age: 43 Year
  Sex: Female

DRUGS (5)
  1. DICLORAPID [Suspect]
     Indication: PAIN
     Route: 048
     Dates: start: 201312, end: 201401
  2. VALSACOR [Suspect]
     Indication: ESSENTIAL HYPERTENSION
     Dosage: 80MG 1 IN 1 D, ORAL
     Route: 048
     Dates: start: 2013
  3. TERTENSIF - SLOW RELEASE [Suspect]
     Indication: ESSENTIAL HYPERTENSION
     Dosage: 1.5MG, 1 IN 1 D, ORAL
     Route: 048
     Dates: start: 2013
  4. PHYSIOTENS (MOXONIDINE) (FILM-COATED TABLET) (MOXONIDINE) [Concomitant]
  5. CONTROLOC (PANTOPRAZOLE SODIUM SESQUIHYDRATE) (TABLET) (PANTOPRAZOLE SODIUM SESQUIHYDRATE) [Concomitant]

REACTIONS (2)
  - Blood pressure increased [None]
  - Drug interaction [None]
